FAERS Safety Report 8041721-1 (Version None)
Quarter: 2012Q1

REPORT INFORMATION
  Report Type: 
  Country: None (occurrence: None)
  Receive Date: 20120112
  Receipt Date: 20120104
  Transmission Date: 20120608
  Serious: Yes (Hospitalization)
  Sender: FDA-Public Use
  Company Number: US-ASTELLAS-2012US000093

PATIENT
  Age: 68 Year
  Sex: Male

DRUGS (10)
  1. PROGRAF [Suspect]
     Indication: RENAL TRANSPLANT
     Dosage: 2 MG, BID, DAY 5-8 POST OP
     Route: 065
     Dates: start: 20080101, end: 20080101
  2. MYCOPHENOLATE SODIUM [Concomitant]
     Dosage: 1440 MG, UID/QD
     Route: 065
     Dates: start: 20080101
  3. PROGRAF [Suspect]
     Dosage: 2 MG, BID, DAY 11-12 POST OP
     Route: 065
     Dates: start: 20080101, end: 20080101
  4. MYCOPHENOLATE SODIUM [Concomitant]
     Indication: RENAL TRANSPLANT
     Dosage: 540 MG, BID
     Route: 065
     Dates: start: 20080101, end: 20080101
  5. THYMOGLOBULIN [Concomitant]
     Indication: RENAL TRANSPLANT
     Dosage: 4 MG/KG, TOTAL DOSE, DAY 0
     Route: 065
     Dates: start: 20080501, end: 20080501
  6. SOLU-MEDROL [Concomitant]
     Dosage: 50 MG, UID/QD, DAY 2 POST OP
     Route: 065
     Dates: start: 20080101, end: 20080101
  7. PREDNISONE TAB [Concomitant]
     Indication: RENAL TRANSPLANT
     Dosage: 20 G, UID/QD, STARTING DAY 3 POST OP
     Route: 065
     Dates: start: 20080101
  8. PROGRAF [Suspect]
     Dosage: 3 MG, BID, DAY 9-10 POST OP
     Route: 065
     Dates: start: 20080101, end: 20080101
  9. THYMOGLOBULIN [Concomitant]
     Dosage: 1 MG/KG, UID/QD, DAY 1-4 POST OP
     Route: 065
     Dates: start: 20080101, end: 20080101
  10. SOLU-MEDROL [Concomitant]
     Indication: RENAL TRANSPLANT
     Dosage: 100 MG, UID/QD, DAY 1 POST OP
     Route: 065
     Dates: start: 20080101, end: 20080101

REACTIONS (2)
  - PNEUMONIA [None]
  - THROMBOTIC MICROANGIOPATHY [None]
